FAERS Safety Report 20190054 (Version 2)
Quarter: 2021Q4

REPORT INFORMATION
  Report Type: Spontaneous
  Country: CN (occurrence: CN)
  Receive Date: 20211215
  Receipt Date: 20211217
  Transmission Date: 20220303
  Serious: Yes (Other)
  Sender: FDA-Public Use
  Company Number: CN-NOVARTISPH-NVSC2021CN284896

PATIENT

DRUGS (4)
  1. DICLOFENAC SODIUM [Suspect]
     Active Substance: DICLOFENAC SODIUM
     Indication: Gout
     Dosage: 0.05 G, QD
     Route: 048
  2. BENZBROMARONE [Suspect]
     Active Substance: BENZBROMARONE
     Indication: Gout
     Dosage: 50 MG, QD
     Route: 065
  3. SODIUM BICARBONATE [Concomitant]
     Active Substance: SODIUM BICARBONATE
     Indication: Gout
     Dosage: 0.5 G, TID
     Route: 065
  4. GLUCOSAMINE SULFATE [Concomitant]
     Active Substance: GLUCOSAMINE SULFATE
     Indication: Gout
     Dosage: 0.5 G, TID
     Route: 065

REACTIONS (2)
  - Nephrolithiasis [Unknown]
  - Acute kidney injury [Unknown]
